FAERS Safety Report 9123372 (Version 2)
Quarter: 2013Q1

REPORT INFORMATION
  Report Type: Spontaneous
  Country: CN (occurrence: CN)
  Receive Date: 20130115
  Receipt Date: 20130314
  Transmission Date: 20140127
  Serious: Yes (Hospitalization)
  Sender: FDA-Public Use
  Company Number: CN-SANOFI-AVENTIS-2013SA000889

PATIENT
  Age: 78 Year
  Sex: Male

DRUGS (1)
  1. CLOPIDOGREL BISULFATE [Suspect]
     Indication: THROMBOSIS
     Route: 048
     Dates: start: 201209, end: 201209

REACTIONS (3)
  - Palpitations [Recovered/Resolved]
  - Suspected counterfeit product [Unknown]
  - Dizziness [Recovered/Resolved]
